FAERS Safety Report 18964555 (Version 2)
Quarter: 2022Q1

REPORT INFORMATION
  Report Type: Spontaneous
  Country: US (occurrence: US)
  Receive Date: 20210303
  Receipt Date: 20220224
  Transmission Date: 20220424
  Serious: No
  Sender: FDA-Public Use
  Company Number: US-AMNEAL PHARMACEUTICALS-2020-AMRX-03746

PATIENT
  Sex: Male

DRUGS (8)
  1. RYTARY [Suspect]
     Active Substance: CARBIDOPA\LEVODOPA
     Indication: Parkinson^s disease
     Dosage: 48.75/195MG, 4 CAPSULES, QID
     Route: 048
     Dates: start: 20201123, end: 2020
  2. RYTARY [Suspect]
     Active Substance: CARBIDOPA\LEVODOPA
     Dosage: 48.75/195MG, 4 CAPSULES, 3 /DAY
     Route: 048
  3. RYTARY [Suspect]
     Active Substance: CARBIDOPA\LEVODOPA
     Dosage: 61.25/245MG, 1 CAPSULES, QID
     Route: 048
     Dates: start: 20210126, end: 2021
  4. RYTARY [Suspect]
     Active Substance: CARBIDOPA\LEVODOPA
     Dosage: 48.75/195MG, 4 CAPSULES, QID
     Route: 048
     Dates: start: 202101, end: 2021
  5. RYTARY [Suspect]
     Active Substance: CARBIDOPA\LEVODOPA
     Dosage: 61.25/245MG, 3 CAPSULES, 5 /DAY
     Route: 048
     Dates: start: 2021
  6. ATENOLOL [Concomitant]
     Active Substance: ATENOLOL
     Indication: Blood pressure abnormal
     Dosage: UNK
     Route: 065
  7. TAMSULOSIN [Concomitant]
     Active Substance: TAMSULOSIN
     Indication: Prostatic disorder
     Dosage: UNK
     Route: 065
  8. TAMSULOSIN [Concomitant]
     Active Substance: TAMSULOSIN
     Indication: Bladder disorder

REACTIONS (8)
  - Chills [Recovered/Resolved]
  - Hypoaesthesia [Unknown]
  - Pain in extremity [Unknown]
  - Vision blurred [Not Recovered/Not Resolved]
  - Tremor [Recovered/Resolved]
  - Gait disturbance [Recovered/Resolved]
  - Musculoskeletal stiffness [Not Recovered/Not Resolved]
  - Prescribed overdose [Unknown]

NARRATIVE: CASE EVENT DATE: 20200101
